FAERS Safety Report 26051420 (Version 2)
Quarter: 2025Q4

REPORT INFORMATION
  Report Type: Report from Study
  Country: EU (occurrence: EU)
  Receive Date: 20251117
  Receipt Date: 20251125
  Transmission Date: 20260117
  Serious: Yes (Death)
  Sender: ULTRAGENYX PHARMACEUTICAL
  Company Number: EU-ULTRAGENYX PHARMACEUTICAL INC.-FR-UGX-25-02215

PATIENT
  Sex: Male

DRUGS (1)
  1. TRIHEPTANOIN [Suspect]
     Active Substance: TRIHEPTANOIN
     Indication: Product used for unknown indication
     Dosage: UNK
     Route: 065

REACTIONS (1)
  - Death [Fatal]
